FAERS Safety Report 6372153-X (Version None)
Quarter: 2009Q3

REPORT INFORMATION
  Report Type: 
  Country: None (occurrence: None)
  Receive Date: 20090917
  Receipt Date: 20090904
  Transmission Date: 20100115
  Serious: Yes (Congenital Anomaly)
  Sender: FDA-Public Use
  Company Number: ADR16142009

PATIENT
  Sex: 0

DRUGS (3)
  1. CITALOPRAM HYDROBROMIDE [Suspect]
     Indication: ANXIETY
     Dosage: TRANSPLACENTAL
     Route: 064
     Dates: start: 20060501
  2. CITALOPRAM HYDROBROMIDE [Suspect]
     Indication: DEPRESSION
     Dosage: TRANSPLACENTAL
     Route: 064
     Dates: start: 20060501
  3. FERROUS SULFATE TAB [Concomitant]

REACTIONS (1)
  - TALIPES [None]
